FAERS Safety Report 4575465-5 (Version None)
Quarter: 2005Q1

REPORT INFORMATION
  Report Type: 
  Country: None (occurrence: None)
  Receive Date: 20050209
  Receipt Date: 20050131
  Transmission Date: 20050727
  Serious: Yes (Hospitalization)
  Sender: FDA-Public Use
  Company Number: 200510381FR

PATIENT
  Age: 81 Year
  Sex: Male

DRUGS (17)
  1. OFLOCET [Suspect]
     Indication: ENCEPHALITIS
     Route: 042
     Dates: start: 20041119, end: 20041125
  2. OFLOCET [Suspect]
     Indication: MENINGITIS
     Route: 042
     Dates: start: 20041119, end: 20041125
  3. CLAFORAN [Suspect]
     Indication: ENCEPHALITIS
     Route: 042
     Dates: start: 20041113, end: 20041122
  4. CLAFORAN [Suspect]
     Indication: MENINGITIS
     Route: 042
     Dates: start: 20041113, end: 20041122
  5. LOVENOX [Concomitant]
  6. CLAMOXYL [Concomitant]
     Route: 042
  7. CALCIPARINE [Concomitant]
  8. ZOVIRAX [Concomitant]
  9. XATRAL [Concomitant]
  10. VASTAREL [Concomitant]
  11. DILTIAZEM HCL [Concomitant]
  12. PLAVIX [Concomitant]
  13. ALLOPURINOL [Concomitant]
  14. VASTEN [Concomitant]
  15. TARDYFERON [Concomitant]
  16. STILNOX [Concomitant]
  17. EQUANIL [Concomitant]

REACTIONS (1)
  - RENAL FAILURE ACUTE [None]
